FAERS Safety Report 7526506-4 (Version None)
Quarter: 2011Q2

REPORT INFORMATION
  Report Type: 
  Country: None (occurrence: None)
  Receive Date: 20110527
  Receipt Date: 20110520
  Transmission Date: 20111010
  Serious: Yes (Other)
  Sender: FDA-Public Use
  Company Number: 2011ZX00295

PATIENT
  Age: 51 Year
  Sex: Female

DRUGS (14)
  1. DILTIAZEM [Concomitant]
  2. LEVOTHYROXINE SODIUM [Concomitant]
  3. SUMAVEL DOSEPRO [Suspect]
     Indication: MIGRAINE
     Dosage: X1;
     Dates: start: 20110413, end: 20110413
  4. KLONOPIN [Concomitant]
  5. SPIRIVA [Concomitant]
  6. COUMADIN [Concomitant]
  7. LIPITOR [Concomitant]
  8. LEXAPRO [Concomitant]
  9. MAXALT /01406501/ [Concomitant]
  10. LYRICA [Concomitant]
  11. FUROSEMIDE [Concomitant]
  12. PROTONIX [Concomitant]
  13. ALBUTEROL [Concomitant]
  14. PHENERGAN /00033001/ [Concomitant]

REACTIONS (2)
  - SOMNOLENCE [None]
  - HYPOTENSION [None]
